FAERS Safety Report 5752882-9 (Version None)
Quarter: 2008Q2

REPORT INFORMATION
  Report Type: 
  Country: None (occurrence: None)
  Receive Date: 20080529
  Receipt Date: 20080520
  Transmission Date: 20081010
  Serious: Yes (Other)
  Sender: FDA-Public Use
  Company Number: FR-BOEHRINGER INGELHEIM GMBH, GERMANY-2008-FF-00385FF

PATIENT
  Sex: Male

DRUGS (4)
  1. SPIRIVA [Suspect]
     Route: 055
     Dates: start: 20080328
  2. PREDNISONE [Concomitant]
     Dates: start: 20080328
  3. CLAMOXYL [Concomitant]
     Dates: start: 20080328
  4. SERETIDE DISKUS [Concomitant]

REACTIONS (4)
  - GLOSSITIS [None]
  - PRURITUS [None]
  - RASH [None]
  - TOXIC SKIN ERUPTION [None]
